FAERS Safety Report 16623399 (Version 1)
Quarter: 2019Q3

REPORT INFORMATION
  Report Type: Spontaneous
  Country: US (occurrence: US)
  Receive Date: 20190723
  Receipt Date: 20190723
  Transmission Date: 20191004
  Serious: No
  Sender: FDA-Public Use
  Company Number: US-GALDERMA-US19039993

PATIENT
  Age: 20 Year
  Sex: Female

DRUGS (4)
  1. PROACTIV MD ADAPALENE ACNE TREATMENT [Suspect]
     Active Substance: ADAPALENE
     Indication: ACNE
     Dosage: 0.1%
     Route: 061
     Dates: start: 20180522, end: 201807
  2. PROACTIV MD DAILY OIL CONTROL SPF 30 [Suspect]
     Active Substance: AVOBENZONE\OCTISALATE\OCTOCRYLENE
     Indication: ACNE
     Route: 061
     Dates: start: 20180522, end: 201807
  3. PROACTIV MD DEEP CLEANSING FACE WASH [Concomitant]
     Active Substance: COSMETICS
     Indication: ACNE
     Route: 061
     Dates: start: 20180522, end: 201807
  4. BIRTH CONTROL [Concomitant]
     Active Substance: UNSPECIFIED INGREDIENT
     Indication: CONTRACEPTION

REACTIONS (5)
  - Dry skin [Recovered/Resolved]
  - Acne [Recovered/Resolved]
  - Skin burning sensation [Recovered/Resolved]
  - Pain of skin [Recovered/Resolved]
  - Dermatitis [Recovered/Resolved]

NARRATIVE: CASE EVENT DATE: 201806
